FAERS Safety Report 6426516-4 (Version None)
Quarter: 2009Q4

REPORT INFORMATION
  Report Type: 
  Country: None (occurrence: None)
  Receive Date: 20091030
  Receipt Date: 20091021
  Transmission Date: 20100525
  Serious: Yes (Hospitalization)
  Sender: FDA-Public Use
  Company Number: 014737

PATIENT
  Sex: Male

DRUGS (15)
  1. PRIALT [Suspect]
     Indication: POST LAMINECTOMY SYNDROME
     Dosage: SEE IMAGE
     Route: 037
     Dates: start: 20090704, end: 20090716
  2. PRIALT [Suspect]
     Indication: POST LAMINECTOMY SYNDROME
     Dosage: SEE IMAGE
     Route: 037
     Dates: start: 20090716, end: 20090723
  3. PRIALT [Suspect]
     Indication: POST LAMINECTOMY SYNDROME
     Dosage: SEE IMAGE
     Route: 037
     Dates: start: 20090723, end: 20090803
  4. PRIALT [Suspect]
     Indication: POST LAMINECTOMY SYNDROME
     Dosage: SEE IMAGE
     Route: 037
     Dates: start: 20090803, end: 20090810
  5. PRIALT [Suspect]
     Indication: POST LAMINECTOMY SYNDROME
     Dosage: SEE IMAGE
     Route: 037
     Dates: start: 20090810, end: 20090817
  6. PRIALT [Suspect]
     Indication: POST LAMINECTOMY SYNDROME
     Dosage: SEE IMAGE
     Route: 037
     Dates: start: 20090817
  7. ACETYLSALICYLIC ACID SRT [Concomitant]
  8. HYDROCHLOROTHIAZIDE [Concomitant]
  9. PROSTESS (SERENOA REPENS) [Concomitant]
  10. LACTULOSE [Concomitant]
  11. VOLTAREN /00372301/ (DICLOFENAC) [Concomitant]
  12. RAMIPRIL [Concomitant]
  13. SIMVASTATIN [Concomitant]
  14. BETA BLOCKING AGENTS [Concomitant]
  15. MORPHINE [Concomitant]

REACTIONS (11)
  - APHASIA [None]
  - ARTHRALGIA [None]
  - DYSAESTHESIA [None]
  - DYSGEUSIA [None]
  - GLOSSODYNIA [None]
  - ORAL DISORDER [None]
  - ORAL MUCOSAL EXFOLIATION [None]
  - PAIN IN JAW [None]
  - RHINALGIA [None]
  - TREMOR [None]
  - WITHDRAWAL SYNDROME [None]
